FAERS Safety Report 4595649-X (Version None)
Quarter: 2005Q1

REPORT INFORMATION
  Report Type: 
  Country: None (occurrence: None)
  Receive Date: 20050223
  Receipt Date: 20050223
  Transmission Date: 20050727
  Serious: Yes (Other)
  Sender: FDA-Public Use
  Company Number: None

PATIENT
  Age: 55 Year
  Sex: Male
  Weight: 107.9561 kg

DRUGS (1)
  1. PIPERACILLIN/TAZOBACTAM 3.375G DOSE [Suspect]
     Indication: CYSTITIS
     Dosage: IV
     Route: 042
     Dates: start: 20040830

REACTIONS (2)
  - LACRIMATION INCREASED [None]
  - RASH PRURITIC [None]
